FAERS Safety Report 6376924-5 (Version None)
Quarter: 2009Q3

REPORT INFORMATION
  Report Type: 
  Country: None (occurrence: None)
  Receive Date: 20090925
  Receipt Date: 20090914
  Transmission Date: 20100115
  Serious: Yes (Hospitalization, Other)
  Sender: FDA-Public Use
  Company Number: CA-PFIZER INC-2009268417

PATIENT
  Age: 39 Year

DRUGS (2)
  1. ZELDOX [Suspect]
  2. RISPERIDONE [Concomitant]
     Dosage: 3.5 MG DAILY

REACTIONS (2)
  - AKATHISIA [None]
  - SLEEP DISORDER [None]
